FAERS Safety Report 4812638-8 (Version None)
Quarter: 2005Q4

REPORT INFORMATION
  Report Type: 
  Country: None (occurrence: None)
  Receive Date: 20051028
  Receipt Date: 20041103
  Transmission Date: 20060501
  Serious: No
  Sender: FDA-Public Use
  Company Number: US-GLAXOSMITHKLINE-A0532530A

PATIENT
  Age: 25 Year
  Sex: Female

DRUGS (3)
  1. ADVAIR DISKUS 100/50 [Suspect]
     Indication: ASTHMA
     Dosage: 1PUFF TWICE PER DAY
     Route: 055
     Dates: start: 20040701, end: 20041104
  2. YASMIN [Concomitant]
     Route: 048
  3. FLUCONAZOLE [Concomitant]
     Route: 048

REACTIONS (2)
  - GINGIVAL PAIN [None]
  - SENSITIVITY OF TEETH [None]
